FAERS Safety Report 6058972-8 (Version None)
Quarter: 2009Q1

REPORT INFORMATION
  Report Type: 
  Country: None (occurrence: None)
  Receive Date: 20090130
  Receipt Date: 20090121
  Transmission Date: 20090719
  Serious: Yes (Hospitalization)
  Sender: FDA-Public Use
  Company Number: A0765164A

PATIENT
  Age: 71 Year
  Sex: Male
  Weight: 78 kg

DRUGS (2)
  1. LAPATINIB [Suspect]
     Indication: COLORECTAL CANCER
     Dosage: 1250MG PER DAY
     Route: 048
     Dates: start: 20081113, end: 20081230
  2. CAPECITABINE [Suspect]
     Indication: COLORECTAL CANCER
     Dosage: 2000MG TWICE PER DAY
     Dates: start: 20081113, end: 20081218

REACTIONS (3)
  - COMPRESSION FRACTURE [None]
  - HAEMATEMESIS [None]
  - HAEMOPTYSIS [None]
